FAERS Safety Report 26183170 (Version 1)
Quarter: 2025Q4

REPORT INFORMATION
  Report Type: Spontaneous
  Country: EU (occurrence: None)
  Receive Date: 20251221
  Receipt Date: 20251221
  Transmission Date: 20260117
  Serious: Yes (Other)
  Sender: UCB
  Company Number: EU-UCBSA-2025080548

PATIENT
  Age: 19 Year

DRUGS (5)
  1. FENFLURAMINE HYDROCHLORIDE [Suspect]
     Active Substance: FENFLURAMINE HYDROCHLORIDE
     Indication: Lennox-Gastaut syndrome
     Dosage: 4 MILLILITER, 2X/DAY (BID)
  2. BRIVIACT [Suspect]
     Active Substance: BRIVARACETAM
     Indication: Lennox-Gastaut syndrome
     Dosage: UNK
  3. VALPROIC ACID [Concomitant]
     Active Substance: VALPROIC ACID
     Indication: Product used for unknown indication
     Dosage: UNK
  4. TOPIRAMATE [Concomitant]
     Active Substance: TOPIRAMATE
     Indication: Product used for unknown indication
     Dosage: UNK
  5. PERAMPANEL [Concomitant]
     Active Substance: PERAMPANEL
     Indication: Product used for unknown indication
     Dosage: UNK

REACTIONS (4)
  - Hallucination [Unknown]
  - Fatigue [Unknown]
  - Off label use [Unknown]
  - Therapeutic product effect delayed [Unknown]
